FAERS Safety Report 16691145 (Version 1)
Quarter: 2019Q3

REPORT INFORMATION
  Report Type: Spontaneous
  Country: JP (occurrence: JP)
  Receive Date: 20190812
  Receipt Date: 20190812
  Transmission Date: 20191004
  Serious: Yes (Other)
  Sender: FDA-Public Use
  Company Number: JP-SUN PHARMACEUTICAL INDUSTRIES LTD-2019RR-217144

PATIENT
  Age: 76 Year
  Sex: Male

DRUGS (2)
  1. CISPLATIN. [Suspect]
     Active Substance: CISPLATIN
     Indication: BLADDER CANCER
     Dosage: 70 MILLIGRAM/SQ. METER, 1 DOSE/3 WEEKS
     Route: 065
  2. GEMCITABINE. [Suspect]
     Active Substance: GEMCITABINE
     Indication: BLADDER CANCER
     Dosage: 1000 MILLIGRAM/SQ. METER, 1 DOSE/3 WEEKS
     Route: 065

REACTIONS (3)
  - Deep vein thrombosis [Recovered/Resolved]
  - Pulmonary embolism [Recovered/Resolved]
  - Tumour thrombosis [Recovered/Resolved]
